FAERS Safety Report 10511847 (Version 18)
Quarter: 2015Q3

REPORT INFORMATION
  Report Type: Report from Study
  Country: US (occurrence: US)
  Receive Date: 20141010
  Receipt Date: 20150710
  Transmission Date: 20151125
  Serious: Yes (Life-Threatening, Hospitalization)
  Sender: FDA-Public Use
  Company Number: US-009507513-1410USA003544

PATIENT
  Age: 52 Year
  Sex: Male
  Weight: 73.5 kg

DRUGS (5)
  1. LEVOTHYROXINE SODIUM. [Concomitant]
     Active Substance: LEVOTHYROXINE SODIUM
     Indication: HYPOTHYROIDISM
     Dosage: 100 MICROGRAM, QD
     Route: 050
     Dates: start: 20140702
  2. FENTANYL. [Concomitant]
     Active Substance: FENTANYL
     Indication: PAIN
     Dosage: DAILY DOSE: 25 MICROGRAM/HOUR, FREQUENCY: OTHER
     Route: 062
     Dates: start: 201409
  3. PEMBROLIZUMAB. [Suspect]
     Active Substance: PEMBROLIZUMAB
     Indication: HEAD AND NECK CANCER
     Dosage: 10 MG/KG, QOW
     Route: 042
     Dates: start: 20140910, end: 20140910
  4. ACETAMINOPHEN. [Concomitant]
     Active Substance: ACETAMINOPHEN
     Indication: NECK PAIN
     Dosage: 500 MG DAILY, PRN
     Route: 050
     Dates: start: 20140813
  5. OXYCODONE [Concomitant]
     Active Substance: OXYCODONE
     Indication: NECK PAIN
     Dosage: 1 MG DAILY, PRN
     Route: 050
     Dates: start: 20140813

REACTIONS (3)
  - Respiratory distress [Recovered/Resolved]
  - Swelling face [Not Recovered/Not Resolved]
  - Sepsis [Recovered/Resolved]

NARRATIVE: CASE EVENT DATE: 20140923
